FAERS Safety Report 14633465 (Version 3)
Quarter: 2019Q1

REPORT INFORMATION
  Report Type: Report from Study
  Country: BR (occurrence: BR)
  Receive Date: 20180313
  Receipt Date: 20190210
  Transmission Date: 20190417
  Serious: Yes (Other)
  Sender: FDA-Public Use
  Company Number: BR-ALEXION-A201802812

PATIENT
  Sex: Male

DRUGS (2)
  1. SOLIRIS [Suspect]
     Active Substance: ECULIZUMAB
     Indication: PAROXYSMAL NOCTURNAL HAEMOGLOBINURIA
     Dosage: 600 MG, QW
     Route: 042
     Dates: start: 20131226, end: 20140116
  2. SOLIRIS [Suspect]
     Active Substance: ECULIZUMAB
     Dosage: 900 MG, Q2W
     Route: 042
     Dates: start: 20140123

REACTIONS (12)
  - Gallbladder disorder [Unknown]
  - Renal disorder [Unknown]
  - Hepatic cirrhosis [Unknown]
  - International normalised ratio abnormal [Unknown]
  - Cholelithiasis [Unknown]
  - Oesophageal disorder [Unknown]
  - Portal vein thrombosis [Unknown]
  - Mitral valve incompetence [Unknown]
  - Asthenia [Unknown]
  - Cardiac disorder [Unknown]
  - Ascites [Recovered/Resolved]
  - Nephrolithiasis [Unknown]
